FAERS Safety Report 21561192 (Version 4)
Quarter: 2023Q1

REPORT INFORMATION
  Report Type: Report from Study
  Country: CH (occurrence: CH)
  Receive Date: 20221107
  Receipt Date: 20230217
  Transmission Date: 20230418
  Serious: Yes (Other)
  Sender: FDA-Public Use
  Company Number: CH-BAYER-2022A149545

PATIENT
  Sex: Female

DRUGS (1)
  1. MIRENA [Suspect]
     Active Substance: LEVONORGESTREL
     Dosage: 20?G/DAY
     Route: 015
     Dates: start: 20160120

REACTIONS (2)
  - Device breakage [None]
  - Complication of device removal [None]
